FAERS Safety Report 7210019-3 (Version None)
Quarter: 2011Q1

REPORT INFORMATION
  Report Type: 
  Country: None (occurrence: None)
  Receive Date: 20110105
  Receipt Date: 20101222
  Transmission Date: 20110831
  Serious: No
  Sender: FDA-Public Use
  Company Number: US-BIOGENIDEC-2011BI000084

PATIENT
  Age: 64 Year
  Sex: Female

DRUGS (3)
  1. TYSABRI [Suspect]
     Indication: MULTIPLE SCLEROSIS
     Route: 042
     Dates: start: 20080616
  2. ANTI-ANXIETY MEDICATIONS (NOS) [Concomitant]
     Indication: ANXIETY
     Dates: start: 20080101
  3. SLEEPING PILLS (NOS) [Concomitant]

REACTIONS (4)
  - DYSSTASIA [None]
  - TREMOR [None]
  - POOR QUALITY SLEEP [None]
  - GAIT DISTURBANCE [None]
